FAERS Safety Report 20446897 (Version 1)
Quarter: 2022Q1

REPORT INFORMATION
  Report Type: Spontaneous
  Country: US (occurrence: US)
  Receive Date: 20220208
  Receipt Date: 20220208
  Transmission Date: 20220424
  Serious: No
  Sender: FDA-Public Use
  Company Number: US-HORIZON THERAPEUTICS-HZN-2021-004962

PATIENT
  Sex: Male

DRUGS (1)
  1. ACTIMMUNE [Suspect]
     Active Substance: INTERFERON GAMMA-1B
     Indication: Product used for unknown indication
     Route: 065

REACTIONS (3)
  - Influenza like illness [Recovered/Resolved]
  - Intraocular pressure increased [Recovered/Resolved]
  - Visual impairment [Recovered/Resolved]
